FAERS Safety Report 16261878 (Version 4)
Quarter: 2019Q3

REPORT INFORMATION
  Report Type: Report from Study
  Country: CA (occurrence: CA)
  Receive Date: 20190501
  Receipt Date: 20190708
  Transmission Date: 20191004
  Serious: Yes (Other)
  Sender: FDA-Public Use
  Company Number: CA-JNJFOC-20190442511

PATIENT
  Age: 75 Year
  Sex: Male
  Weight: 93.7 kg

DRUGS (7)
  1. ROSUVASTATIN. [Concomitant]
     Active Substance: ROSUVASTATIN
  2. ENTOCORT [Concomitant]
     Active Substance: BUDESONIDE
  3. ANDROGEL [Concomitant]
     Active Substance: TESTOSTERONE
  4. TRAZODONE [Concomitant]
     Active Substance: TRAZODONE HYDROCHLORIDE
  5. CHOLESTYRAMINE. [Concomitant]
     Active Substance: CHOLESTYRAMINE
  6. STELARA [Suspect]
     Active Substance: USTEKINUMAB
     Indication: CROHN^S DISEASE
     Dosage: STRENGTH = 90 MG
     Route: 058
     Dates: start: 20190107
  7. QUESTRAN [Concomitant]
     Active Substance: CHOLESTYRAMINE

REACTIONS (1)
  - Basal cell carcinoma [Recovering/Resolving]
